FAERS Safety Report 5698091-3 (Version None)
Quarter: 2008Q2

REPORT INFORMATION
  Report Type: 
  Country: None (occurrence: None)
  Receive Date: 20080408
  Receipt Date: 20080329
  Transmission Date: 20081010
  Serious: Yes (Death)
  Sender: FDA-Public Use
  Company Number: TR-ELI_LILLY_AND_COMPANY-TR200804001346

PATIENT
  Sex: Male

DRUGS (2)
  1. HUMULIN N [Suspect]
     Route: 058
     Dates: start: 20070101
  2. HUMULIN R [Suspect]
     Route: 058
     Dates: start: 20070101

REACTIONS (1)
  - HAEMORRHAGE [None]
